FAERS Safety Report 4694513-5 (Version None)
Quarter: 2005Q2

REPORT INFORMATION
  Report Type: 
  Country: None (occurrence: None)
  Receive Date: 20050620
  Receipt Date: 20050513
  Transmission Date: 20051028
  Serious: Yes (Death, Disabling)
  Sender: FDA-Public Use
  Company Number: BE-MERCK-0505BEL00057

PATIENT
  Age: 98 Year
  Sex: Female

DRUGS (2)
  1. COZAAR [Suspect]
     Indication: HYPERTENSION
     Route: 048
     Dates: start: 19970313
  2. FENOFIBRATE [Concomitant]
     Indication: HYPERCHOLESTEROLAEMIA
     Route: 048
     Dates: start: 19951127

REACTIONS (2)
  - CARDIAC FAILURE [None]
  - CEREBROVASCULAR ACCIDENT [None]
